FAERS Safety Report 25500720 (Version 1)
Quarter: 2025Q3

REPORT INFORMATION
  Report Type: Spontaneous
  Country: EU (occurrence: EU)
  Receive Date: 20250701
  Receipt Date: 20250701
  Transmission Date: 20251020
  Serious: Yes (Other)
  Sender: PFIZER
  Company Number: EU-PFIZER INC-PV202500076722

PATIENT
  Age: 52 Year
  Sex: Female

DRUGS (1)
  1. LORLATINIB [Suspect]
     Active Substance: LORLATINIB
     Indication: Non-small cell lung cancer
     Dates: start: 20240919

REACTIONS (14)
  - Hallucination [Recovering/Resolving]
  - Dizziness [Recovering/Resolving]
  - Amnesia [Recovering/Resolving]
  - Nervousness [Recovering/Resolving]
  - Weight increased [Recovering/Resolving]
  - Oedema peripheral [Recovering/Resolving]
  - Hypercholesterolaemia [Recovering/Resolving]
  - Hypertriglyceridaemia [Recovering/Resolving]
  - Paraesthesia [Recovering/Resolving]
  - Dysaesthesia [Recovering/Resolving]
  - Dizziness [Recovering/Resolving]
  - Cognitive disorder [Recovering/Resolving]
  - Speech disorder [Recovering/Resolving]
  - Affective disorder [Recovering/Resolving]
